FAERS Safety Report 18484467 (Version 3)
Quarter: 2021Q1

REPORT INFORMATION
  Report Type: Other
  Country: DE (occurrence: DE)
  Receive Date: 20201110
  Receipt Date: 20210209
  Transmission Date: 20210419
  Serious: Yes (Other)
  Sender: FDA-Public Use
  Company Number: DE-ROCHE-2116970

PATIENT
  Age: 55 Year
  Sex: Female

DRUGS (18)
  1. IBUPROFEN. [Concomitant]
     Active Substance: IBUPROFEN
     Indication: PAIN
  2. NOVOTHYRAL [Concomitant]
     Active Substance: LEVOTHYROXINE SODIUM\LIOTHYRONINE SODIUM
  3. LEVETIRACETAM. [Concomitant]
     Active Substance: LEVETIRACETAM
     Route: 048
  4. PRAMIPEXOL [Concomitant]
     Active Substance: PRAMIPEXOLE
     Indication: RESTLESS LEGS SYNDROME
     Route: 048
  5. OCREVUS [Suspect]
     Active Substance: OCRELIZUMAB
     Indication: RELAPSING-REMITTING MULTIPLE SCLEROSIS
     Dosage: 19/APR/2018 RECEIVED THE SECOND INFUSION
     Route: 042
     Dates: start: 20180404
  6. SATIVEX [Concomitant]
     Active Substance: NABIXIMOLS
     Dosage: 2?12 DF
     Route: 048
  7. IBUPROFEN. [Concomitant]
     Active Substance: IBUPROFEN
  8. TOPIRAMAT [Concomitant]
     Active Substance: TOPIRAMATE
     Indication: MIGRAINE
     Route: 048
  9. OCREVUS [Suspect]
     Active Substance: OCRELIZUMAB
     Route: 042
     Dates: start: 20191107
  10. OCREVUS [Suspect]
     Active Substance: OCRELIZUMAB
     Route: 042
     Dates: start: 20201105
  11. LYRICA [Concomitant]
     Active Substance: PREGABALIN
     Indication: POLYNEUROPATHY
     Route: 048
  12. SATIVEX [Concomitant]
     Active Substance: NABIXIMOLS
     Indication: MUSCLE SPASTICITY
  13. IBUPROFEN. [Concomitant]
     Active Substance: IBUPROFEN
     Route: 048
  14. OCREVUS [Suspect]
     Active Substance: OCRELIZUMAB
     Route: 042
     Dates: start: 20181025
  15. LEVETIRACETAM. [Concomitant]
     Active Substance: LEVETIRACETAM
     Indication: EPILEPSY
  16. RESTEX [Concomitant]
     Active Substance: BENSERAZIDE\LEVODOPA
     Indication: RESTLESS LEGS SYNDROME
     Dosage: 100/25 DOSE UNIT NOT REPORTED
  17. RESTEX [Concomitant]
     Active Substance: BENSERAZIDE\LEVODOPA
     Route: 048
  18. SUMATRIPTAN. [Concomitant]
     Active Substance: SUMATRIPTAN
     Indication: MIGRAINE
     Route: 048

REACTIONS (13)
  - Multiple sclerosis relapse [Recovered/Resolved]
  - Vitamin D decreased [Not Recovered/Not Resolved]
  - Infection susceptibility increased [Recovered/Resolved]
  - Pain in extremity [Recovered/Resolved]
  - Mental disorder [Unknown]
  - Pain in extremity [Not Recovered/Not Resolved]
  - Influenza like illness [Recovered/Resolved]
  - Migraine [Recovered/Resolved]
  - Fatigue [Recovered/Resolved]
  - Laryngitis [Recovering/Resolving]
  - Drug ineffective [Unknown]
  - Cystitis noninfective [Recovered/Resolved]
  - Infection susceptibility increased [Recovered/Resolved]

NARRATIVE: CASE EVENT DATE: 20180423
